FAERS Safety Report 4527920-1 (Version None)
Quarter: 2004Q4

REPORT INFORMATION
  Report Type: 
  Country: None (occurrence: None)
  Receive Date: 20041123
  Receipt Date: 20040616
  Transmission Date: 20050328
  Serious: Yes (Death)
  Sender: FDA-Public Use
  Company Number: 20040600321

PATIENT
  Sex: Female

DRUGS (1)
  1. MORPHINE [Suspect]
     Dosage: MG  CONTINUOUS
     Dates: end: 20040518

REACTIONS (3)
  - COMA [None]
  - DEATH [None]
  - OVERDOSE [None]
